FAERS Safety Report 20318533 (Version 4)
Quarter: 2022Q1

REPORT INFORMATION
  Report Type: Report from Study
  Country: TW (occurrence: TW)
  Receive Date: 20220110
  Receipt Date: 20220204
  Transmission Date: 20220424
  Serious: Yes (Hospitalization)
  Sender: FDA-Public Use
  Company Number: TW-SERVIER-S22000008

PATIENT

DRUGS (23)
  1. AZACITIDINE [Suspect]
     Active Substance: AZACITIDINE
     Indication: Acute myeloid leukaemia
     Dosage: 120 MG, DAILY
     Route: 058
     Dates: start: 20200226, end: 20200303
  2. AZACITIDINE [Suspect]
     Active Substance: AZACITIDINE
     Dosage: 116 MG, DAILY
     Route: 058
     Dates: start: 20200325, end: 20200331
  3. AZACITIDINE [Suspect]
     Active Substance: AZACITIDINE
     Dosage: 112 MG, DAILY
     Route: 058
     Dates: start: 20200422, end: 20200428
  4. AZACITIDINE [Suspect]
     Active Substance: AZACITIDINE
     Dosage: 108 MG, DAILY
     Route: 058
     Dates: start: 20200520, end: 20200707
  5. AZACITIDINE [Suspect]
     Active Substance: AZACITIDINE
     Dosage: 110 MG, DAILY
     Route: 058
     Dates: start: 20200729, end: 20200804
  6. AZACITIDINE [Suspect]
     Active Substance: AZACITIDINE
     Dosage: 112 MG, DAILY
     Route: 058
     Dates: start: 20200826, end: 20200901
  7. AZACITIDINE [Suspect]
     Active Substance: AZACITIDINE
     Dosage: 114 MG, DAILY
     Route: 058
     Dates: start: 20200923, end: 20200929
  8. AZACITIDINE [Suspect]
     Active Substance: AZACITIDINE
     Dosage: 116 MG, DAILY
     Route: 058
     Dates: start: 20201021, end: 20201027
  9. AZACITIDINE [Suspect]
     Active Substance: AZACITIDINE
     Dosage: 118 MG, DAILY
     Route: 058
     Dates: start: 20201118, end: 20201124
  10. AZACITIDINE [Suspect]
     Active Substance: AZACITIDINE
     Dosage: 120 MG, DAILY
     Route: 058
     Dates: start: 20201216, end: 20210119
  11. AZACITIDINE [Suspect]
     Active Substance: AZACITIDINE
     Dosage: 122 MG, DAILY
     Route: 058
     Dates: start: 20210217, end: 20210223
  12. AZACITIDINE [Suspect]
     Active Substance: AZACITIDINE
     Dosage: 124 MG, DAILY
     Route: 058
     Dates: start: 20210317, end: 20210615
  13. AZACITIDINE [Suspect]
     Active Substance: AZACITIDINE
     Dosage: 122 MG, DAILY
     Route: 058
     Dates: start: 20210707, end: 20210713
  14. AZACITIDINE [Suspect]
     Active Substance: AZACITIDINE
     Dosage: 124 MG, DAILY
     Route: 058
     Dates: start: 20210804, end: 20211102
  15. AZACITIDINE [Suspect]
     Active Substance: AZACITIDINE
     Dosage: 122 MG, DAILY
     Route: 058
     Dates: start: 20211124, end: 20211228
  16. TN UNSPECIFIED [Concomitant]
     Indication: Lung infiltration
     Dosage: 100 MG, TID
     Route: 048
     Dates: start: 20200611
  17. HYDROCHLOROTHIAZIDE\VALSARTAN [Concomitant]
     Active Substance: HYDROCHLOROTHIAZIDE\VALSARTAN
     Indication: Hypertension
     Dosage: 1 TABLET, QD
     Route: 048
     Dates: start: 20200929
  18. ASPIRIN [Concomitant]
     Active Substance: ASPIRIN
     Indication: Myocardial ischaemia
     Dosage: 100 MG, QD
     Route: 048
     Dates: start: 20210114
  19. CADUET [Concomitant]
     Active Substance: AMLODIPINE BESYLATE\ATORVASTATIN CALCIUM
     Indication: Hypertension
     Dosage: 0.5 TABLET, QD
     Route: 048
     Dates: start: 20210115
  20. TN UNSPECIFIED [Concomitant]
     Indication: Type 2 diabetes mellitus
     Dosage: 2 MG, BID
     Route: 048
     Dates: start: 20210120
  21. TN UNSPECIFIED [Concomitant]
     Indication: Insomnia
     Dosage: 0.5 MG, HS
     Route: 048
     Dates: start: 20210316
  22. VILDAGLIPTIN [Concomitant]
     Active Substance: VILDAGLIPTIN
     Indication: Type 2 diabetes mellitus
     Dosage: 1 TABLET, BID
     Route: 048
     Dates: start: 20210902
  23. Colin [Concomitant]
     Indication: Lung infiltration
     Dosage: 5 ML, TID
     Route: 048
     Dates: start: 20211012

REACTIONS (4)
  - Febrile neutropenia [Recovered/Resolved]
  - Urinary tract infection [Recovered/Resolved]
  - Urinary tract infection [Recovered/Resolved]
  - Febrile neutropenia [Recovered/Resolved]

NARRATIVE: CASE EVENT DATE: 20211231
